FAERS Safety Report 25542562 (Version 1)
Quarter: 2025Q3

REPORT INFORMATION
  Report Type: Spontaneous
  Country: EU (occurrence: EU)
  Receive Date: 20250711
  Receipt Date: 20250711
  Transmission Date: 20251020
  Serious: Yes (Hospitalization, Other)
  Sender: RANBAXY
  Company Number: EU-EMA-DD-20250325-7482643-062008

PATIENT
  Sex: Male

DRUGS (14)
  1. ARIPIPRAZOLE [Suspect]
     Active Substance: ARIPIPRAZOLE
     Indication: Antipsychotic therapy
     Dosage: 30 MILLIGRAM, DAILY
     Route: 065
  2. GABAPENTIN [Suspect]
     Active Substance: GABAPENTIN
     Indication: Mood altered
     Route: 065
  3. OLANZAPINE [Suspect]
     Active Substance: OLANZAPINE
     Indication: Bipolar disorder
     Route: 065
  4. CHLORPROMAZINE [Suspect]
     Active Substance: CHLORPROMAZINE
     Indication: Bipolar disorder
     Route: 065
  5. CLOMIPRAMINE [Concomitant]
     Active Substance: CLOMIPRAMINE
     Indication: Antidepressant therapy
     Dosage: 100 MILLIGRAM, DAILY
     Route: 065
  6. CLONAZEPAM [Suspect]
     Active Substance: CLONAZEPAM
     Indication: Schizophrenia
     Dosage: 3 MILLIGRAM, DAILY
     Route: 065
  7. CLOZAPINE [Suspect]
     Active Substance: CLOZAPINE
     Indication: Antipsychotic therapy
     Route: 065
  8. MIRTAZAPINE [Suspect]
     Active Substance: MIRTAZAPINE
     Indication: Antidepressant therapy
     Dosage: 30 MILLIGRAM, DAILY
     Route: 065
  9. PERPHENAZINE [Concomitant]
     Active Substance: PERPHENAZINE
     Indication: Antipsychotic therapy
     Dosage: 8 MILLIGRAM, DAILY
     Route: 065
  10. PIMOZIDE [Suspect]
     Active Substance: PIMOZIDE
     Indication: Bipolar disorder
     Route: 065
  11. QUETIAPINE [Suspect]
     Active Substance: QUETIAPINE
     Indication: Bipolar disorder
     Route: 065
  12. RISPERIDONE [Suspect]
     Active Substance: RISPERIDONE
     Indication: Bipolar disorder
     Route: 065
  13. TRAZODONE [Concomitant]
     Active Substance: TRAZODONE HYDROCHLORIDE
     Indication: Antidepressant therapy
     Dosage: 75 MILLIGRAM, DAILY
     Route: 065
  14. VALPROATE SODIUM [Suspect]
     Active Substance: VALPROATE SODIUM
     Indication: Mood altered
     Route: 065

REACTIONS (2)
  - Suicide attempt [Unknown]
  - Therapy partial responder [Unknown]
